FAERS Safety Report 5635929-X (Version None)
Quarter: 2008Q1

REPORT INFORMATION
  Report Type: 
  Country: None (occurrence: None)
  Receive Date: 20080224
  Receipt Date: 20080215
  Transmission Date: 20080703
  Serious: Yes (Hospitalization)
  Sender: FDA-Public Use
  Company Number: PHHO2008VE01351

PATIENT
  Age: 49 Year
  Sex: Male
  Weight: 74 kg

DRUGS (4)
  1. MYFORTIC [Suspect]
     Indication: RENAL TRANSPLANT
     Dosage: 1440MG / DAY
     Route: 048
     Dates: start: 20070809
  2. MYFORTIC [Suspect]
     Dosage: 720 MG
  3. CYCLOSPORINE [Suspect]
     Dosage: 200 MG
     Route: 048
  4. PREDNISONE TAB [Suspect]
     Indication: RENAL TRANSPLANT
     Dosage: 10 MG
     Route: 048

REACTIONS (14)
  - AGGRESSION [None]
  - ALTERED STATE OF CONSCIOUSNESS [None]
  - BLOOD CREATININE INCREASED [None]
  - BLOOD LACTATE DEHYDROGENASE ABNORMAL [None]
  - BRADYCARDIA [None]
  - CYTOMEGALOVIRUS INFECTION [None]
  - ENCEPHALITIS CYTOMEGALOVIRUS [None]
  - HEPATIC ENCEPHALOPATHY [None]
  - HYPOTENSION [None]
  - PUPILS UNEQUAL [None]
  - RESPIRATORY ARREST [None]
  - SHOCK [None]
  - SOMNOLENCE [None]
  - STUPOR [None]
